FAERS Safety Report 4375648-3 (Version None)
Quarter: 2004Q2

REPORT INFORMATION
  Report Type: 
  Country: None (occurrence: None)
  Receive Date: 20040610
  Receipt Date: 20040604
  Transmission Date: 20050107
  Serious: Yes (Hospitalization)
  Sender: FDA-Public Use
  Company Number: US-GLAXOSMITHKLINE-A0513449A

PATIENT
  Age: 64 Year
  Sex: Female

DRUGS (2)
  1. PAXIL [Suspect]
     Indication: GENERALISED ANXIETY DISORDER
     Dosage: 40MG PER DAY
     Route: 048
  2. ATIVAN [Concomitant]

REACTIONS (5)
  - AGITATION [None]
  - COMA [None]
  - EYELID FUNCTION DISORDER [None]
  - INCOHERENT [None]
  - TINNITUS [None]
